FAERS Safety Report 4448870-5 (Version None)
Quarter: 2004Q3

REPORT INFORMATION
  Report Type: 
  Country: None (occurrence: None)
  Receive Date: 20040909
  Receipt Date: 20040823
  Transmission Date: 20050211
  Serious: Yes (Hospitalization, Other)
  Sender: FDA-Public Use
  Company Number: USA040876187

PATIENT
  Age: 69 Year
  Sex: Female

DRUGS (4)
  1. HUMULIN 70/30 [Suspect]
     Indication: DIABETES MELLITUS
     Dosage: 99 U DAY
     Dates: start: 19890101
  2. HUMALOG [Suspect]
     Indication: DIABETES MELLITUS
     Dates: start: 20040201, end: 20040201
  3. SYNTHROID [Concomitant]
  4. MAXZIDE [Concomitant]

REACTIONS (11)
  - BLADDER CANCER [None]
  - BLOOD GLUCOSE DECREASED [None]
  - BLOOD GLUCOSE INCREASED [None]
  - BLOOD URINE [None]
  - CARDIAC OPERATION [None]
  - EYE DISORDER [None]
  - HYPERTENSION [None]
  - SENSORY LOSS [None]
  - THROMBOSIS [None]
  - URINARY TRACT INFECTION [None]
  - VISUAL ACUITY REDUCED [None]
